FAERS Safety Report 6728873-8 (Version None)
Quarter: 2010Q2

REPORT INFORMATION
  Report Type: 
  Country: None (occurrence: None)
  Receive Date: 20100517
  Receipt Date: 20100301
  Transmission Date: 20101027
  Serious: No
  Sender: FDA-Public Use
  Company Number: US-ABBOTT-10P-163-0629618-00

PATIENT
  Sex: Female
  Weight: 97.156 kg

DRUGS (2)
  1. SIMCOR [Suspect]
     Indication: BLOOD CHOLESTEROL INCREASED
     Dosage: 500MG/20MG AT NIGHT
     Dates: start: 20091201, end: 20100115
  2. SIMCOR [Suspect]
     Dosage: 500MG/20MG AT NIGHT
     Dates: start: 20091001, end: 20091007

REACTIONS (1)
  - FLUSHING [None]
